FAERS Safety Report 4693344-X (Version None)
Quarter: 2005Q2

REPORT INFORMATION
  Report Type: 
  Country: None (occurrence: None)
  Receive Date: 20050617
  Receipt Date: 20050418
  Transmission Date: 20051028
  Serious: Yes (Death, Hospitalization, Disabling)
  Sender: FDA-Public Use
  Company Number: US-MERCK-0504USA03455

PATIENT
  Age: 16 Year
  Sex: Male
  Weight: 95 kg

DRUGS (11)
  1. TYLENOL W/ CODEINE NO. 4 [Concomitant]
     Route: 065
  2. FOLIC ACID [Concomitant]
     Route: 065
  3. DILAUDID [Concomitant]
     Route: 065
  4. HYDROXYUREA [Concomitant]
     Indication: SICKLE CELL ANAEMIA
     Route: 065
  5. [THERAPY UNSPECIFIED] [Concomitant]
     Route: 065
  6. PREVACID [Concomitant]
     Route: 065
  7. PRILOSEC [Concomitant]
     Route: 065
  8. MORPHINE [Concomitant]
     Indication: SICKLE CELL ANAEMIA WITH CRISIS
     Route: 065
     Dates: start: 19861201
  9. DEMEROL [Concomitant]
     Indication: SICKLE CELL ANAEMIA WITH CRISIS
     Route: 065
     Dates: start: 19861201
  10. VIOXX [Suspect]
     Indication: SICKLE CELL ANAEMIA
     Route: 048
     Dates: start: 20020101, end: 20040419
  11. PAXIL [Concomitant]
     Route: 065
     Dates: start: 20020101

REACTIONS (17)
  - ADENOIDECTOMY [None]
  - ADENOIDITIS [None]
  - CARDIAC FAILURE [None]
  - CARDIAC VALVE DISEASE [None]
  - COR PULMONALE CHRONIC [None]
  - DEEP VEIN THROMBOSIS [None]
  - DEPRESSION [None]
  - DRUG HYPERSENSITIVITY [None]
  - EMOTIONAL DISTRESS [None]
  - GASTRIC DISORDER [None]
  - INJURY [None]
  - PULMONARY EMBOLISM [None]
  - PULMONARY HYPERTENSION [None]
  - SICKLE CELL ANAEMIA [None]
  - SLEEP APNOEA SYNDROME [None]
  - TONSILLECTOMY [None]
  - TONSILLITIS [None]
